FAERS Safety Report 5654826-7 (Version None)
Quarter: 2008Q1

REPORT INFORMATION
  Report Type: 
  Country: None (occurrence: None)
  Receive Date: 20080307
  Receipt Date: 20070726
  Transmission Date: 20080703
  Serious: No
  Sender: FDA-Public Use
  Company Number: A0667435A

PATIENT

DRUGS (1)
  1. REQUIP [Suspect]
     Indication: RESTLESS LEGS SYNDROME
     Route: 065
     Dates: start: 20070701

REACTIONS (5)
  - EMOTIONAL DISTRESS [None]
  - HYPERHIDROSIS [None]
  - INSOMNIA [None]
  - NOCTURIA [None]
  - URINE OUTPUT INCREASED [None]
